FAERS Safety Report 5592743-1 (Version None)
Quarter: 2007Q4

REPORT INFORMATION
  Report Type: 
  Country: None (occurrence: None)
  Receive Date: 20071217
  Receipt Date: 20071018
  Transmission Date: 20080405
  Serious: No
  Sender: FDA-Public Use
  Company Number: BDI-010394

PATIENT
  Age: 34 Year
  Sex: Male

DRUGS (3)
  1. MULTIHANCE [Suspect]
     Indication: HEADACHE
     Dosage: SY
     Dates: start: 20071017, end: 20071017
  2. MULTIHANCE [Suspect]
     Indication: MUSCLE TWITCHING
     Dosage: SY
     Dates: start: 20071017, end: 20071017
  3. MULTIHANCE [Suspect]
     Indication: NUCLEAR MAGNETIC RESONANCE IMAGING BRAIN
     Dosage: SY
     Dates: start: 20071017, end: 20071017

REACTIONS (1)
  - ANAPHYLACTIC REACTION [None]
